FAERS Safety Report 14713923 (Version 7)
Quarter: 2018Q4

REPORT INFORMATION
  Report Type: Report from Study
  Country: HK (occurrence: HK)
  Receive Date: 20180404
  Receipt Date: 20181108
  Transmission Date: 20190204
  Serious: Yes (Hospitalization)
  Sender: FDA-Public Use
  Company Number: HK-ROCHE-2099339

PATIENT
  Age: 59 Year
  Sex: Female
  Weight: 58.2 kg

DRUGS (30)
  1. FLUIMUCIL [Concomitant]
     Active Substance: ACETYLCYSTEINE
     Route: 048
     Dates: start: 20180530
  2. RENITEC (ENALAPRIL MALEATE) [Concomitant]
     Route: 048
     Dates: start: 20180529
  3. METOPROLOL TARTRATE. [Concomitant]
     Active Substance: METOPROLOL TARTRATE
     Route: 048
     Dates: start: 20180327, end: 20180331
  4. PREDNISOLONE. [Concomitant]
     Active Substance: PREDNISOLONE
     Route: 048
     Dates: start: 20180529
  5. CISPLATIN. [Suspect]
     Active Substance: CISPLATIN
     Indication: TRANSITIONAL CELL CARCINOMA
     Dosage: MOST RECENT DOSE OF CISPLATIN (110 MG) PRIOR TO AE ONSET: 04/JAN/2018?ADMINISTERED AT A DOSE OF 70 M
     Route: 042
     Dates: start: 20171010
  6. THYMOL GARGLE COMPOUND (HONG KONG) [Concomitant]
     Route: 065
     Dates: start: 20171009, end: 20180305
  7. LACTULOSE. [Concomitant]
     Active Substance: LACTULOSE
     Route: 048
     Dates: start: 20180425, end: 20180515
  8. SENNA [Concomitant]
     Active Substance: SENNA LEAF\SENNOSIDES\SENNOSIDES A AND B
     Route: 048
     Dates: start: 20180425, end: 20180515
  9. LIPITOR [Concomitant]
     Active Substance: ATORVASTATIN CALCIUM
     Route: 048
     Dates: start: 20180221
  10. DITROPAN [Concomitant]
     Active Substance: OXYBUTYNIN CHLORIDE
     Route: 048
     Dates: start: 20171024
  11. PEPCIDINE [Concomitant]
     Active Substance: FAMOTIDINE
     Route: 048
     Dates: start: 20180221
  12. ASPIRIN. [Concomitant]
     Active Substance: ASPIRIN
     Route: 048
     Dates: start: 20180425, end: 20180515
  13. LIPITOR [Concomitant]
     Active Substance: ATORVASTATIN CALCIUM
     Route: 048
     Dates: start: 20180425, end: 20180515
  14. METOPROLOL TARTRATE. [Concomitant]
     Active Substance: METOPROLOL TARTRATE
     Route: 048
     Dates: start: 20180529
  15. ATEZOLIZUMAB. [Suspect]
     Active Substance: ATEZOLIZUMAB
     Indication: TRANSITIONAL CELL CARCINOMA
     Dosage: DATE OF MOST RECENT DOSE OF ATEZOLIZUMAB:07/MAR/2018
     Route: 042
     Dates: start: 20171010
  16. DIFFLAM [Concomitant]
     Active Substance: BENZYDAMINE HYDROCHLORIDE
     Route: 065
     Dates: start: 20180509
  17. LIPITOR [Concomitant]
     Active Substance: ATORVASTATIN CALCIUM
     Route: 048
     Dates: start: 20180530
  18. GLYCERYL TRINITRATE [Concomitant]
     Active Substance: NITROGLYCERIN
     Route: 060
     Dates: start: 20180529
  19. GEMCITABINE [Suspect]
     Active Substance: GEMCITABINE\GEMCITABINE HYDROCHLORIDE
     Indication: TRANSITIONAL CELL CARCINOMA
     Dosage: DAY 1 AND DAY 8 OF EACH 21-DAY CYCLE?MOST RECENT DOSE OF GEMCITABINE PRIOR TO AE ONSET:11/JAN/2018
     Route: 042
     Dates: start: 20171010
  20. TRAMADOL. [Concomitant]
     Active Substance: TRAMADOL
     Route: 048
     Dates: start: 20180425, end: 20180515
  21. AUGMENTIN [Concomitant]
     Active Substance: AMOXICILLIN\CLAVULANATE POTASSIUM
     Route: 048
     Dates: start: 20180530
  22. PANTOPRAZOLE SODIUM SESQUIHYDRATE [Concomitant]
     Active Substance: PANTOPRAZOLE SODIUM
     Route: 048
     Dates: start: 20180529
  23. PREDNISOLONE. [Concomitant]
     Active Substance: PREDNISOLONE
     Route: 048
     Dates: start: 20180530
  24. ASPIRIN. [Concomitant]
     Active Substance: ASPIRIN
     Route: 048
     Dates: start: 20180221
  25. PANTOPRAZOLE SODIUM SESQUIHYDRATE [Concomitant]
     Active Substance: PANTOPRAZOLE SODIUM
     Route: 048
     Dates: start: 20180415, end: 20180427
  26. DIFFLAM [Concomitant]
     Active Substance: BENZYDAMINE HYDROCHLORIDE
     Route: 065
     Dates: start: 20180213, end: 20180305
  27. DIFFLAM [Concomitant]
     Active Substance: BENZYDAMINE HYDROCHLORIDE
     Route: 065
     Dates: start: 20180306, end: 20180326
  28. DULCOLAX (BISACODYL) [Concomitant]
     Active Substance: BISACODYL
     Route: 048
     Dates: start: 20180509
  29. ASPIRIN. [Concomitant]
     Active Substance: ASPIRIN
     Route: 048
     Dates: start: 20180530
  30. NYSTATIN. [Concomitant]
     Active Substance: NYSTATIN
     Route: 048
     Dates: start: 20180402, end: 20180426

REACTIONS (1)
  - Cholecystitis [Recovered/Resolved]

NARRATIVE: CASE EVENT DATE: 20180327
